FAERS Safety Report 7548523-0 (Version None)
Quarter: 2011Q2

REPORT INFORMATION
  Report Type: 
  Country: None (occurrence: None)
  Receive Date: 20110615
  Receipt Date: 20110609
  Transmission Date: 20111010
  Serious: Yes (Other)
  Sender: FDA-Public Use
  Company Number: US-AMGEN-USASP2011029967

PATIENT
  Age: 57 Year
  Sex: Female

DRUGS (1)
  1. NPLATE [Suspect]
     Indication: MYELODYSPLASTIC SYNDROME
     Dosage: UNK
     Dates: start: 20100714

REACTIONS (1)
  - BIOPSY BONE MARROW ABNORMAL [None]
